FAERS Safety Report 13486036 (Version 3)
Quarter: 2017Q2

REPORT INFORMATION
  Report Type: Spontaneous
  Country: CH (occurrence: BR)
  Receive Date: 20170426
  Receipt Date: 20170516
  Transmission Date: 20170830
  Serious: Yes (Hospitalization)
  Sender: FDA-Public Use
  Company Number: CH-LPDUSPRD-20170454

PATIENT
  Age: 44 Year
  Sex: Female

DRUGS (8)
  1. VENOFER [Suspect]
     Active Substance: IRON SUCROSE
     Dosage: 2 AMPULES FOR 2 MONTHS
     Route: 065
  2. CAPOTRIL [Concomitant]
     Dosage: DOSE UNKNOWN
     Route: 065
  3. XIGDUO XR [Concomitant]
     Active Substance: DAPAGLIFLOZIN PROPANEDIOL\METFORMIN HYDROCHLORIDE
     Dosage: 1 TABLET ALTERNATE DAYS
     Route: 065
  4. CERAZETTE [Concomitant]
     Active Substance: DESOGESTREL
     Dosage: DOSE UNKNOWN
     Route: 065
  5. FORXIGA [Concomitant]
     Active Substance: DAPAGLIFLOZIN
     Dosage: 1 TABLET,ALTERNATE DAYS
     Route: 065
  6. ADDERA D3 [Concomitant]
     Active Substance: CHOLECALCIFEROL
     Dosage: UNKNOWN DOSE
     Route: 065
  7. MALTOFER [Suspect]
     Active Substance: IRON POLYMALTOSE
     Dosage: 2 TABLETS DAILY IN 3 MONTHS
     Route: 048
  8. FUROSEMIDE. [Concomitant]
     Active Substance: FUROSEMIDE
     Dosage: DOSE UNKNOWN
     Route: 065

REACTIONS (7)
  - Asthenia [Not Recovered/Not Resolved]
  - Depression [Unknown]
  - Accident [Unknown]
  - Post-traumatic pain [Unknown]
  - Anaemia [Unknown]
  - Osteoarthritis [Unknown]
  - Paralysis [Unknown]

NARRATIVE: CASE EVENT DATE: 2012
